FAERS Safety Report 6723174-6 (Version None)
Quarter: 2010Q2

REPORT INFORMATION
  Report Type: 
  Country: None (occurrence: None)
  Receive Date: 20100513
  Receipt Date: 20100505
  Transmission Date: 20101027
  Serious: Yes (Hospitalization)
  Sender: FDA-Public Use
  Company Number: US-JNJFOC-20100502430

PATIENT
  Sex: Female
  Weight: 95.26 kg

DRUGS (7)
  1. DURAGESIC-100 [Suspect]
     Indication: PAIN
     Route: 062
  2. DURAGESIC-100 [Suspect]
     Route: 062
  3. DURAGESIC-100 [Suspect]
     Route: 062
  4. OXYCODONE [Concomitant]
     Indication: PAIN
     Route: 048
  5. XANAX [Concomitant]
     Indication: ANXIETY
     Route: 048
  6. TERBINAFINE HCL [Concomitant]
     Indication: SKIN LESION
     Route: 048
  7. TACLONEX [Concomitant]
     Indication: SKIN LESION
     Route: 061

REACTIONS (11)
  - BLOOD PRESSURE INCREASED [None]
  - DIZZINESS [None]
  - HYPERHIDROSIS [None]
  - LOCALISED INFECTION [None]
  - MALAISE [None]
  - NAUSEA [None]
  - PAIN [None]
  - PANIC ATTACK [None]
  - PRODUCT QUALITY ISSUE [None]
  - SKIN DISORDER [None]
  - VOMITING [None]
